FAERS Safety Report 6338279-1 (Version None)
Quarter: 2009Q3

REPORT INFORMATION
  Report Type: 
  Country: None (occurrence: None)
  Receive Date: 20090902
  Receipt Date: 20090827
  Transmission Date: 20100115
  Serious: Yes (Hospitalization)
  Sender: FDA-Public Use
  Company Number: JP-WYE-H10465609

PATIENT
  Sex: Male
  Weight: 64 kg

DRUGS (9)
  1. ZOSYN [Suspect]
     Indication: PNEUMONIA
     Route: 041
     Dates: start: 20090721, end: 20090803
  2. THEO-DUR [Concomitant]
     Route: 048
  3. HOKUNALIN [Concomitant]
  4. HALCION [Concomitant]
     Route: 048
  5. BLOPRESS [Concomitant]
     Route: 048
  6. DIGOXIN [Concomitant]
     Route: 048
  7. AMARYL [Concomitant]
     Route: 048
  8. MINOCYCLINE HYDROCHLORIDE [Suspect]
     Indication: PNEUMONIA
     Route: 041
     Dates: start: 20090721, end: 20090803
  9. CARDENALIN [Concomitant]
     Route: 048

REACTIONS (2)
  - DUODENAL ULCER [None]
  - DUODENAL ULCER HAEMORRHAGE [None]
